FAERS Safety Report 7752743-X (Version None)
Quarter: 2011Q3

REPORT INFORMATION
  Report Type: 
  Country: None (occurrence: None)
  Receive Date: 20110915
  Receipt Date: 20110907
  Transmission Date: 20111222
  Serious: Yes (Other)
  Sender: FDA-Public Use
  Company Number: SY-ROCHE-801402

PATIENT
  Age: 8 Year
  Sex: Female

DRUGS (1)
  1. ACTEMRA [Suspect]
     Route: 042
     Dates: start: 20110506

REACTIONS (3)
  - PERICARDIAL EFFUSION [None]
  - ASTHMA [None]
  - DYSPNOEA [None]
